FAERS Safety Report 24199548 (Version 1)
Quarter: 2024Q3

REPORT INFORMATION
  Report Type: Spontaneous
  Country: US (occurrence: US)
  Receive Date: 20240812
  Receipt Date: 20240812
  Transmission Date: 20241017
  Serious: Yes (Hospitalization)
  Sender: STRIDES
  Company Number: US-STRIDES ARCOLAB LIMITED-2024SP009963

PATIENT
  Age: 8 Year
  Sex: Male

DRUGS (11)
  1. METHOTREXATE [Suspect]
     Active Substance: METHOTREXATE
     Indication: Gastrointestinal haemorrhage
     Dosage: 12.5 MILLIGRAM, ONCE A WEEK
     Route: 065
  2. METHOTREXATE [Suspect]
     Active Substance: METHOTREXATE
     Indication: Joint effusion
     Dosage: 10 MILLIGRAM, ONCE A WEEK
     Route: 065
  3. COLCHICINE [Suspect]
     Active Substance: COLCHICINE
     Indication: Mouth ulceration
     Dosage: 0.6 MILLIGRAM, BID
     Route: 065
  4. COLCHICINE [Suspect]
     Active Substance: COLCHICINE
     Indication: Haematochezia
     Dosage: 0.6 MILLIGRAM, BID
     Route: 065
  5. COLCHICINE [Suspect]
     Active Substance: COLCHICINE
     Indication: Cerebral venous sinus thrombosis
  6. INFLIXIMAB [Suspect]
     Active Substance: INFLIXIMAB
     Indication: Gastrointestinal haemorrhage
     Dosage: 10 MILLIGRAM/KILOGRAM (WEEKS 0, 2, AND 6)
     Route: 065
  7. INFLIXIMAB [Suspect]
     Active Substance: INFLIXIMAB
     Dosage: 10 MILLIGRAM/KILOGRAM
     Route: 065
  8. USTEKINUMAB [Suspect]
     Active Substance: USTEKINUMAB
     Indication: Gastrointestinal haemorrhage
     Dosage: 390 MILLIGRAM
     Route: 042
  9. USTEKINUMAB [Suspect]
     Active Substance: USTEKINUMAB
     Indication: Behcet^s syndrome
     Dosage: 90 MILLIGRAM, EVERY 4 WEEKS
     Route: 058
  10. ENOXAPARIN [Concomitant]
     Active Substance: ENOXAPARIN
     Indication: Cerebral venous sinus thrombosis
     Dosage: 1 MILLIGRAM/KILOGRAM, BID
     Route: 065
  11. METHYLPREDNISOLONE [Concomitant]
     Active Substance: METHYLPREDNISOLONE
     Indication: Cerebral venous sinus thrombosis
     Dosage: 2 MILLIGRAM/KILOGRAM, QD
     Route: 065

REACTIONS (7)
  - Meningism [Recovered/Resolved]
  - Meningitis aseptic [Recovered/Resolved]
  - COVID-19 [Recovered/Resolved]
  - Drug ineffective [Unknown]
  - Condition aggravated [Unknown]
  - Therapy non-responder [Unknown]
  - Off label use [Unknown]
